FAERS Safety Report 5008734-5 (Version None)
Quarter: 2006Q2

REPORT INFORMATION
  Report Type: 
  Country: None (occurrence: None)
  Receive Date: 20060518
  Receipt Date: 20060509
  Transmission Date: 20061013
  Serious: Yes (Other)
  Sender: FDA-Public Use
  Company Number: 2006062920

PATIENT
  Age: 66 Year
  Sex: Male

DRUGS (2)
  1. LITHIUM (LITHIUM) [Suspect]
     Indication: BIPOLAR DISORDER
     Dosage: 1200 MG (600 MG, 2 IN 1 D)
  2. METRONIDAZOLE [Suspect]
     Indication: URINARY TRACT INFECTION

REACTIONS (11)
  - COGNITIVE DISORDER [None]
  - CONFUSIONAL STATE [None]
  - CONTRAINDICATION TO MEDICAL TREATMENT [None]
  - LACK OF SPONTANEOUS SPEECH [None]
  - MEMORY IMPAIRMENT [None]
  - MENTAL DISORDER [None]
  - NEUROTOXICITY [None]
  - PERFORMANCE STATUS DECREASED [None]
  - SPEECH DISORDER [None]
  - THERAPEUTIC AGENT TOXICITY [None]
  - URINARY TRACT INFECTION [None]
